FAERS Safety Report 12133823 (Version 1)
Quarter: 2016Q1

REPORT INFORMATION
  Report Type: Spontaneous
  Country: BR (occurrence: BR)
  Receive Date: 20160301
  Receipt Date: 20160301
  Transmission Date: 20160526
  Serious: Yes (Other)
  Sender: FDA-Public Use
  Company Number: BR-ACCORD-038145

PATIENT
  Age: 46 Year
  Sex: Male
  Weight: 61 kg

DRUGS (5)
  1. DEXAMETHASONE. [Concomitant]
     Active Substance: DEXAMETHASONE
     Indication: PROPHYLAXIS
     Dosage: S.F. 100 ML + DEXAMETHASONE + ONDANSETRON: 10MG/1 AMPOULE
     Route: 042
     Dates: start: 20160202, end: 20160202
  2. ONDANSETRON [Concomitant]
     Active Substance: ONDANSETRON
     Indication: PROPHYLAXIS
     Dosage: S.F. 100 ML + DEXAMETHASONE + ONDANSETRON: 10MG/1 AMPOULE
     Route: 042
     Dates: start: 20160202, end: 20160202
  3. DIPHENHYDRAMINE. [Concomitant]
     Active Substance: DIPHENHYDRAMINE
     Indication: PROPHYLAXIS
     Dosage: 1 AMPOULE
     Route: 042
     Dates: start: 20160202, end: 20160202
  4. RANITIDINE [Concomitant]
     Active Substance: RANITIDINE\RANITIDINE HYDROCHLORIDE
     Indication: PROPHYLAXIS
     Dosage: 50MG/2 ML: 1 AMPOULE
     Route: 042
     Dates: start: 20160202, end: 20160202
  5. PACLITAXEL/PACLITAXEL LIPOSOME [Suspect]
     Active Substance: PACLITAXEL
     Indication: MALIGNANT PALATE NEOPLASM
     Route: 042
     Dates: start: 20160202, end: 20160202

REACTIONS (3)
  - Off label use [Unknown]
  - Muscle spasms [Recovered/Resolved]
  - Cyanosis [Recovered/Resolved]

NARRATIVE: CASE EVENT DATE: 20160202
